FAERS Safety Report 17158982 (Version 1)
Quarter: 2019Q4

REPORT INFORMATION
  Report Type: Spontaneous
  Country: CA (occurrence: CA)
  Receive Date: 20191216
  Receipt Date: 20191216
  Transmission Date: 20200122
  Serious: Yes (Other)
  Sender: FDA-Public Use
  Company Number: CA-PFIZER INC-2019292133

PATIENT
  Age: 50 Year
  Sex: Female

DRUGS (8)
  1. METHOTREXATE SODIUM. [Suspect]
     Active Substance: METHOTREXATE SODIUM
     Dosage: 25 MG, WEEKLY
     Route: 058
     Dates: start: 2007, end: 2019
  2. OTEZLA [Concomitant]
     Active Substance: APREMILAST
     Dosage: UNK
     Dates: end: 201907
  3. VITAMIN B12 [Concomitant]
     Active Substance: CYANOCOBALAMIN
     Dosage: 1000 UG, EVERY 2 WEEKS
     Route: 030
     Dates: start: 20171129
  4. FOLIC ACID. [Concomitant]
     Active Substance: FOLIC ACID
     Dosage: 5 MG, 1X/DAY
     Route: 065
     Dates: start: 20171129
  5. PREDNISONE. [Concomitant]
     Active Substance: PREDNISONE
     Dosage: 3 MG, DAILY
     Route: 048
  6. LEUCOVORIN [FOLINIC ACID] [Concomitant]
     Active Substance: LEUCOVORIN
     Dosage: 1 DF (TABLET), WEEKLY
     Route: 048
     Dates: start: 20180615
  7. PARIET [Concomitant]
     Active Substance: RABEPRAZOLE SODIUM
     Dosage: 20 MG, 1X/DAY, AM
     Route: 065
     Dates: start: 20171129
  8. XELJANZ [Concomitant]
     Active Substance: TOFACITINIB CITRATE
     Indication: RHEUMATOID ARTHRITIS
     Dosage: 5 MG, 2X/DAY
     Route: 048
     Dates: start: 2019

REACTIONS (2)
  - Therapeutic product effect incomplete [Unknown]
  - Suicidal ideation [Unknown]
